FAERS Safety Report 4482583-9 (Version None)
Quarter: 2004Q4

REPORT INFORMATION
  Report Type: 
  Country: None (occurrence: None)
  Receive Date: 20041022
  Receipt Date: 20040121
  Transmission Date: 20050328
  Serious: Yes (Hospitalization, Other)
  Sender: FDA-Public Use
  Company Number: BE-JNJFOC-20040102945

PATIENT
  Age: 14 Year
  Sex: Male

DRUGS (4)
  1. PROPULSID [Suspect]
     Route: 049
     Dates: start: 20030422, end: 20030910
  2. PROPULSID [Suspect]
     Route: 049
     Dates: start: 20030422, end: 20030910
  3. ADALAT [Concomitant]
     Route: 065
  4. LOSEC [Concomitant]
     Route: 065

REACTIONS (1)
  - CORONARY ANGIOPLASTY [None]
